FAERS Safety Report 6757106-1 (Version None)
Quarter: 2010Q2

REPORT INFORMATION
  Report Type: 
  Country: None (occurrence: None)
  Receive Date: 20100604
  Receipt Date: 20100524
  Transmission Date: 20101027
  Serious: Yes (Life-Threatening, Hospitalization, Other)
  Sender: FDA-Public Use
  Company Number: US-ELI_LILLY_AND_COMPANY-US201005006883

PATIENT
  Sex: Female

DRUGS (10)
  1. FORTEO [Suspect]
     Indication: OSTEOPOROSIS
     Dosage: 20 UG, DAILY (1/D)
     Dates: start: 20090101
  2. LISINOPRIL [Concomitant]
     Dosage: 40 MG, DAILY (1/D)
  3. DILTIAZEM CD [Concomitant]
     Dosage: 240 MG, EACH MORNING
  4. FUROSEMIDE [Concomitant]
     Dosage: 40 MG, DAILY (1/D)
  5. KLOR-CON [Concomitant]
     Dosage: 20 MEQ, DAILY (1/D)
  6. LEVOTHYROXINE SODIUM [Concomitant]
     Dosage: 25 MG, DAILY (1/D)
  7. CALCIUM W/VITAMIN D NOS [Concomitant]
  8. FISH OIL [Concomitant]
     Dosage: 1200 MG, 2/D
  9. WARFARIN SODIUM [Concomitant]
     Dosage: 5 MG, EACH EVENING
  10. DILTIAZEM [Concomitant]
     Dosage: 120 MG, EACH EVENING

REACTIONS (7)
  - ARRHYTHMIA [None]
  - BLOOD GLUCOSE ABNORMAL [None]
  - BURNING SENSATION [None]
  - CARDIAC ARREST [None]
  - CATARACT [None]
  - PALPITATIONS [None]
  - TACHYCARDIA [None]
